FAERS Safety Report 8943764 (Version 1)
Quarter: 2012Q4

REPORT INFORMATION
  Report Type: 
  Country: JP (occurrence: JP)
  Receive Date: 20121204
  Receipt Date: 20121204
  Transmission Date: 20130627
  Serious: Yes (Other)
  Sender: FDA-Public Use
  Company Number: JP-PFIZER INC-2012299771

PATIENT
  Age: 37 Year
  Sex: Female
  Weight: 53 kg

DRUGS (3)
  1. SALAZOPYRIN [Suspect]
     Indication: COLITIS ULCERATIVE
     Dosage: 2 DF, 3x/day
     Route: 064
     Dates: start: 20120315, end: 20120328
  2. SALAZOPYRIN [Suspect]
     Indication: COLITIS ULCERATIVE
     Dosage: 1 DF, 2x/day
     Dates: start: 20120328
  3. ASACOL [Suspect]
     Indication: COLITIS ULCERATIVE
     Dosage: 2 DF, 3x/day
     Route: 064
     Dates: start: 201201, end: 20120315

REACTIONS (1)
  - Abortion spontaneous [Unknown]
